FAERS Safety Report 8089359-4 (Version None)
Quarter: 2012Q1

REPORT INFORMATION
  Report Type: 
  Country: None (occurrence: None)
  Receive Date: 20120128
  Receipt Date: 20110712
  Transmission Date: 20120608
  Serious: No
  Sender: FDA-Public Use
  Company Number: US-ABBOTT-11P-163-0838334-00

PATIENT
  Age: 57 Year
  Sex: Male

DRUGS (7)
  1. VERAPAMIL [Concomitant]
     Indication: HYPERTENSION
  2. MERCAPTOPURINE [Concomitant]
     Indication: CROHN'S DISEASE
  3. KLONOPIN [Concomitant]
     Indication: ANXIETY
  4. VALIUM [Concomitant]
     Indication: BACK PAIN
     Dosage: 2 TABLETS PRIOR TO MONTHLY BACK PROCEDURES
  5. VITAMIN TAB [Concomitant]
     Indication: PRODUCT USED FOR UNKNOWN INDICATION
     Dosage: DAILY
  6. HUMIRA [Suspect]
     Indication: CROHN'S DISEASE
     Dates: start: 20110510
  7. LOSARTAN POTASSIUM [Concomitant]
     Indication: HYPERTENSION

REACTIONS (7)
  - DYSPNOEA [None]
  - WHEEZING [None]
  - PNEUMONITIS [None]
  - ARTHRALGIA [None]
  - MYALGIA [None]
  - PAIN [None]
  - INJECTION SITE PAIN [None]
